FAERS Safety Report 9009550 (Version 2)
Quarter: 2013Q1

REPORT INFORMATION
  Report Type: Spontaneous
  Country: IE (occurrence: IE)
  Receive Date: 20130111
  Receipt Date: 20130319
  Transmission Date: 20140127
  Serious: Yes (Other)
  Sender: FDA-Public Use
  Company Number: IE-BAXTER-2013BAX001164

PATIENT
  Age: 34 Week
  Sex: Female
  Weight: 2 kg

DRUGS (3)
  1. KIOVIG [Suspect]
     Indication: FOETAL EXPOSURE TIMING UNSPECIFIED
     Route: 064
  2. CLEXANE [Suspect]
     Indication: FOETAL EXPOSURE TIMING UNSPECIFIED
     Route: 064
  3. ASPIRIN [Suspect]
     Indication: FOETAL EXPOSURE TIMING UNSPECIFIED
     Route: 064

REACTIONS (12)
  - Hepatosplenomegaly [Unknown]
  - Thrombocytopenia [Unknown]
  - Intraventricular haemorrhage [Recovered/Resolved with Sequelae]
  - Foetal exposure during pregnancy [Recovered/Resolved with Sequelae]
  - Maternal drugs affecting foetus [None]
  - Cytomegalovirus infection [None]
  - Congenital toxoplasmosis [None]
  - Caesarean section [None]
  - Premature baby [None]
  - Congenital brain damage [None]
  - Cerebral calcification [None]
  - Cerebral cyst [None]
